FAERS Safety Report 21524986 (Version 1)
Quarter: 2022Q4

REPORT INFORMATION
  Report Type: Spontaneous
  Country: FR (occurrence: FR)
  Receive Date: 20221030
  Receipt Date: 20221030
  Transmission Date: 20230112
  Serious: Yes (Hospitalization)
  Sender: FDA-Public Use
  Company Number: None

PATIENT
  Age: 47 Year
  Sex: Female

DRUGS (5)
  1. ZOLPIDEM [Suspect]
     Active Substance: ZOLPIDEM TARTRATE
     Indication: Toxicity to various agents
     Dosage: UNIT DOSE : 40 MG   , FREQUENCY TIME : 1 TOTAL  , DURATION :  1 DAY
     Dates: start: 20220702, end: 20220702
  2. ACETAMINOPHEN\CODEINE PHOSPHATE [Suspect]
     Active Substance: ACETAMINOPHEN\CODEINE PHOSPHATE
     Indication: Toxicity to various agents
     Dosage: 600MG/50MG , UNIT DOSE : 60 DF  , FREQUENCY TIME : 1 TOTAL  , DURATION : 1 DAY
     Dates: start: 20220702, end: 20220702
  3. OROCAL VITAMINE D3 [Concomitant]
     Indication: Product used for unknown indication
     Dosage: 500 MG/200 IU
  4. LEVOTHYROXINE [Concomitant]
     Active Substance: LEVOTHYROXINE
     Indication: Product used for unknown indication
     Dosage: SCORED TABLET , FORM STRENGTH : 50 MICROGRAM
  5. LOXAPINE [Concomitant]
     Active Substance: LOXAPINE
     Indication: Product used for unknown indication
     Dosage: FORM STRENGTH : 50 MG

REACTIONS (5)
  - Acute kidney injury [Recovered/Resolved]
  - Psychomotor skills impaired [Recovered/Resolved]
  - Alanine aminotransferase increased [Recovered/Resolved]
  - Aspartate aminotransferase increased [Recovered/Resolved]
  - Intentional overdose [Recovered/Resolved]

NARRATIVE: CASE EVENT DATE: 20220702
